FAERS Safety Report 19541584 (Version 2)
Quarter: 2021Q3

REPORT INFORMATION
  Report Type: Spontaneous
  Country: FR (occurrence: FR)
  Receive Date: 20210714
  Receipt Date: 20210719
  Transmission Date: 20211014
  Serious: Yes (Life-Threatening, Hospitalization, Other)
  Sender: FDA-Public Use
  Company Number: FR-INDIVIOR EUROPE LIMITED-INDV-130277-2021

PATIENT

DRUGS (10)
  1. ACUPAN [Suspect]
     Active Substance: NEFOPAM HYDROCHLORIDE
     Indication: PRODUCT USED FOR UNKNOWN INDICATION
     Dosage: 20 MILLIGRAM
     Route: 048
     Dates: end: 20200520
  2. OXYCODONE [Suspect]
     Active Substance: OXYCODONE
     Indication: PRODUCT USED FOR UNKNOWN INDICATION
     Dosage: 60 MILLIGRAM (1 TAB (10 MG) 6 TIMES / DAY IF NEEDED)
     Route: 048
     Dates: start: 20200502, end: 20200502
  3. OXYCODONE [Suspect]
     Active Substance: OXYCODONE
     Dosage: 30 MILLIGRAM (1 TAB (5MG) 6 TIMES / DAY IF NEEDED)
     Route: 048
     Dates: start: 20200503, end: 20200520
  4. SUBUTEX [Suspect]
     Active Substance: BUPRENORPHINE HYDROCHLORIDE
     Dosage: 8 MILLIGRAM
     Route: 060
     Dates: start: 202006
  5. ALCOHOL. [Suspect]
     Active Substance: ALCOHOL
     Indication: PRODUCT USED FOR UNKNOWN INDICATION
     Dosage: SEVERAL TIMES PER DAY
     Route: 065
     Dates: start: 2005, end: 2018
  6. OXYCODONE [Suspect]
     Active Substance: OXYCODONE
     Dosage: 40 MILLIGRAM (1 TAB (20 MG) 2 TIMES / DAY)
     Route: 048
     Dates: start: 20200502, end: 20200502
  7. SUBUTEX [Suspect]
     Active Substance: BUPRENORPHINE HYDROCHLORIDE
     Indication: PRODUCT USED FOR UNKNOWN INDICATION
     Dosage: 14 MILLIGRAM, UNKNOWN
     Route: 060
     Dates: start: 2008
  8. OXYCODONE [Suspect]
     Active Substance: OXYCODONE
     Dosage: 20 MILLIGRAM  (1 TAB (10 MG) TWICE / DAY)
     Route: 048
     Dates: start: 20200503, end: 20200520
  9. SUBUTEX [Suspect]
     Active Substance: BUPRENORPHINE HYDROCHLORIDE
     Indication: PRODUCT USED FOR UNKNOWN INDICATION
     Dosage: 10 MILLIGRAM
     Route: 042
     Dates: start: 20200430, end: 20200430
  10. NICOTINE. [Concomitant]
     Active Substance: NICOTINE
     Indication: PRODUCT USED FOR UNKNOWN INDICATION
     Dosage: 30 CIG/DAY
     Route: 055

REACTIONS (15)
  - Substance abuse [Not Recovered/Not Resolved]
  - Intentional product use issue [Not Recovered/Not Resolved]
  - Pneumonia necrotising [Recovered/Resolved]
  - Drug withdrawal syndrome [Recovered/Resolved]
  - Sedation [Recovered/Resolved]
  - Hepatic cytolysis [Recovered/Resolved]
  - Wrong technique in product usage process [Unknown]
  - Hyperbilirubinaemia [Recovered/Resolved]
  - Staphylococcal bacteraemia [Recovered/Resolved]
  - Toxicity to various agents [Recovered/Resolved]
  - Overdose [Recovered/Resolved]
  - Vascular purpura [Recovered/Resolved]
  - Injection site injury [Recovered/Resolved]
  - Nephrotic syndrome [Not Recovered/Not Resolved]
  - Endocarditis staphylococcal [Recovered/Resolved with Sequelae]

NARRATIVE: CASE EVENT DATE: 2005
